FAERS Safety Report 5850267-8 (Version None)
Quarter: 2008Q3

REPORT INFORMATION
  Report Type: 
  Country: None (occurrence: None)
  Receive Date: 20080819
  Receipt Date: 20080814
  Transmission Date: 20090109
  Serious: Yes (Other)
  Sender: FDA-Public Use
  Company Number: PHEH2008US07189

PATIENT
  Sex: Female

DRUGS (2)
  1. GENTEAL DROPS (NVO) [Suspect]
  2. GENTEAL GEL (NVO) [Suspect]

REACTIONS (1)
  - MACULAR DEGENERATION [None]
